FAERS Safety Report 17214607 (Version 1)
Quarter: 2020Q1

REPORT INFORMATION
  Report Type: Spontaneous
  Country: US (occurrence: US)
  Receive Date: 20191228
  Receipt Date: 20191228
  Transmission Date: 20200409
  Serious: Yes (Hospitalization, Other)
  Sender: FDA-Public Use
  Company Number: None

PATIENT
  Age: 1 Day
  Sex: Male
  Weight: 3.34 kg

DRUGS (3)
  1. LIDOCAINE TOPICAL (LMX 4) [Concomitant]
     Dates: start: 20191219, end: 20191219
  2. HURRICAINE TOPICAL ANESTHETIC SPRAY [Suspect]
     Active Substance: BENZOCAINE
     Indication: PENIS FRENULECTOMY
     Dosage: ?          OTHER FREQUENCY:ONCE;?
     Route: 060
     Dates: start: 20191219, end: 20191219
  3. LIDOCAINE 1% 1 ML [Concomitant]
     Dates: start: 20191219, end: 20191219

REACTIONS (1)
  - Methaemoglobinaemia [None]

NARRATIVE: CASE EVENT DATE: 20191219
